FAERS Safety Report 21187767 (Version 1)
Quarter: 2022Q3

REPORT INFORMATION
  Report Type: Spontaneous
  Country: RU (occurrence: RU)
  Receive Date: 20220809
  Receipt Date: 20220809
  Transmission Date: 20221026
  Serious: Yes (Death, Life-Threatening, Hospitalization, Other)
  Sender: FDA-Public Use
  Company Number: RU-BRISTOL-MYERS SQUIBB COMPANY-BMS-2021-118160

PATIENT
  Age: 60 Year
  Sex: Female
  Weight: 65.2 kg

DRUGS (21)
  1. AZACITIDINE [Suspect]
     Active Substance: AZACITIDINE
     Indication: Myelodysplastic syndrome
     Dosage: 1 IN 1 D
     Route: 058
     Dates: start: 20210812, end: 20211013
  2. SPIRONOLACTONE [Concomitant]
     Active Substance: SPIRONOLACTONE
     Indication: Diuretic therapy
     Dosage: 1 IN 1 D
     Route: 048
     Dates: start: 20210825
  3. OMEPRAZOLE [Concomitant]
     Active Substance: OMEPRAZOLE
     Indication: Stress ulcer
     Dosage: 20 MG 2 IN 1 DAY, INTRAVEOUS BOLUS
     Route: 048
     Dates: start: 20210803, end: 20210920
  4. OMEPRAZOLE [Concomitant]
     Active Substance: OMEPRAZOLE
     Dosage: 20 MG 1 IN 1 DAY
     Route: 040
     Dates: start: 20211021
  5. ACYCLOVIR [Concomitant]
     Active Substance: ACYCLOVIR
     Indication: Viral infection
     Dosage: 3 IN 1 D
     Route: 048
     Dates: start: 20210803
  6. FOLIC ACID [Concomitant]
     Active Substance: FOLIC ACID
     Indication: Folate deficiency
     Dosage: 1 IN 1 D
     Route: 048
     Dates: start: 20210830
  7. FOLIC ACID [Concomitant]
     Active Substance: FOLIC ACID
     Indication: Vomiting
     Dosage: 1 IN 1 D
     Route: 040
     Dates: start: 20211007
  8. AMIODARONE [Concomitant]
     Active Substance: AMIODARONE
     Indication: Atrial fibrillation
     Dosage: 2 IN 1 D
     Route: 048
     Dates: start: 20210903
  9. AMIODARONE [Concomitant]
     Active Substance: AMIODARONE
     Indication: Ventricular extrasystoles
     Dosage: 3 IN 1 D
     Route: 048
     Dates: start: 20210902
  10. AMIODARONE [Concomitant]
     Active Substance: AMIODARONE
     Dosage: 1 IN 1 D
     Route: 042
     Dates: start: 20210902
  11. AMIODARONE [Concomitant]
     Active Substance: AMIODARONE
     Dosage: 1 IN 1 D
     Route: 042
     Dates: start: 20210910
  12. AMIODARONE [Concomitant]
     Active Substance: AMIODARONE
     Dosage: 1 IN 1 D
     Route: 048
     Dates: start: 20210904
  13. AMIODARONE [Concomitant]
     Active Substance: AMIODARONE
     Dosage: 3 IN 1 D
     Route: 048
  14. POTASSIUM CHLORIDE 4% [Concomitant]
     Indication: Blood electrolytes
     Dosage: 1 IN 1 D
     Route: 042
     Dates: start: 20211018
  15. MGSO4 25% [Concomitant]
     Indication: Blood electrolytes
     Dosage: 1 IN 1 D
     Route: 042
     Dates: start: 20211018
  16. METOPROLOL [Concomitant]
     Active Substance: METOPROLOL
     Indication: Ventricular extrasystoles
     Dosage: 1 IN 2 D
     Route: 048
     Dates: start: 20211018
  17. ALBUMIN HUMAN [Concomitant]
     Active Substance: ALBUMIN HUMAN
     Indication: Hypoalbuminaemia
     Dosage: 1 IN 1 D
     Route: 042
     Dates: start: 20211020, end: 20211028
  18. DEXTROSE [Concomitant]
     Active Substance: DEXTROSE
     Indication: Blood electrolytes
     Dosage: 1 IN 1 D
     Route: 041
     Dates: start: 20211025
  19. PREDISOL [METHYLPREDNISOLONE] [Concomitant]
     Indication: Respiratory failure
     Route: 042
     Dates: start: 20211020, end: 20211024
  20. NOREPINEPHRINE [NOREPINEPHRINE BITARTRATE] [Concomitant]
     Indication: Myocardial injury
     Dosage: 0.25 MCC/KC/MIN (1 IN 1  D) 3 DAYS
     Route: 041
     Dates: start: 20211020, end: 20211023
  21. NOREPINEPHRINE [NOREPINEPHRINE BITARTRATE] [Concomitant]
     Indication: Hypotension
     Dosage: 0.4 MCC/KC/MIN (1 IN 1 D)
     Route: 041
     Dates: start: 20211029

REACTIONS (2)
  - Pneumonia [Fatal]
  - Septic shock [Fatal]

NARRATIVE: CASE EVENT DATE: 20211012
